FAERS Safety Report 20136461 (Version 1)
Quarter: 2021Q4

REPORT INFORMATION
  Report Type: Spontaneous
  Country: US (occurrence: None)
  Receive Date: 20211201
  Receipt Date: 20211201
  Transmission Date: 20220303
  Serious: Yes (Hospitalization)
  Sender: FDA-Public Use
  Company Number: None

PATIENT
  Age: 25 Year
  Sex: Male

DRUGS (1)
  1. TOBRAMYCIN [Suspect]
     Active Substance: TOBRAMYCIN

REACTIONS (3)
  - Adrenocortical insufficiency acute [None]
  - Blood sodium decreased [None]
  - Seizure [None]

NARRATIVE: CASE EVENT DATE: 20211115
